FAERS Safety Report 22881057 (Version 2)
Quarter: 2023Q4

REPORT INFORMATION
  Report Type: Spontaneous
  Country: AU (occurrence: AU)
  Receive Date: 20230830
  Receipt Date: 20231020
  Transmission Date: 20240110
  Serious: Yes (Other)
  Sender: FDA-Public Use
  Company Number: AU-NOVOPROD-1105702

PATIENT
  Age: 72 Year
  Sex: Female
  Weight: 67 kg

DRUGS (3)
  1. SAXENDA [Suspect]
     Active Substance: LIRAGLUTIDE
     Dosage: 1.2 FOR 7 DAYS
  2. SAXENDA [Suspect]
     Active Substance: LIRAGLUTIDE
     Indication: Weight control
     Dosage: 0.6 FOR 7 DAYS
     Dates: start: 2023
  3. SAXENDA [Suspect]
     Active Substance: LIRAGLUTIDE
     Dosage: 1.8 FOR 3 DAYS

REACTIONS (3)
  - Pancreatic cyst [Not Recovered/Not Resolved]
  - Tumour marker increased [Unknown]
  - Pancreatitis [Not Recovered/Not Resolved]
